FAERS Safety Report 5005582-7 (Version None)
Quarter: 2006Q2

REPORT INFORMATION
  Report Type: 
  Country: None (occurrence: None)
  Receive Date: 20060512
  Receipt Date: 20060428
  Transmission Date: 20061013
  Serious: Yes (Other)
  Sender: FDA-Public Use
  Company Number: MEDI-0004520

PATIENT
  Age: 60 Year
  Sex: Male

DRUGS (1)
  1. ETHYOL [Suspect]
     Indication: NEOPLASM MALIGNANT
     Dosage: 1 IN 1 D, INTRAVENOUS
     Route: 042

REACTIONS (1)
  - SKIN TOXICITY [None]
